FAERS Safety Report 16480278 (Version 2)
Quarter: 2019Q3

REPORT INFORMATION
  Report Type: Spontaneous
  Country: JP (occurrence: JP)
  Receive Date: 20190626
  Receipt Date: 20190912
  Transmission Date: 20191004
  Serious: Yes (Hospitalization, Other)
  Sender: FDA-Public Use
  Company Number: JP-ASTRAZENECA-2018SF39129

PATIENT
  Age: 78 Year
  Sex: Male
  Weight: 50 kg

DRUGS (5)
  1. DILTIAZEM HYDROCHLORIDE. [Concomitant]
     Active Substance: DILTIAZEM HYDROCHLORIDE
     Route: 048
  2. FAMOTIDINE. [Concomitant]
     Active Substance: FAMOTIDINE
     Route: 048
  3. IMFINZI [Suspect]
     Active Substance: DURVALUMAB
     Indication: NON-SMALL CELL LUNG CANCER
     Route: 042
     Dates: start: 20180905, end: 20180920
  4. SIMVASTATIN. [Suspect]
     Active Substance: SIMVASTATIN
     Route: 048
     Dates: end: 20181018
  5. ZALUTIA [Concomitant]
     Active Substance: TADALAFIL
     Route: 048

REACTIONS (4)
  - Blood creatine phosphokinase increased [Recovering/Resolving]
  - Vocal cord dysfunction [Recovering/Resolving]
  - Muscular weakness [Unknown]
  - Myositis [Unknown]

NARRATIVE: CASE EVENT DATE: 20181003
